FAERS Safety Report 18970559 (Version 4)
Quarter: 2025Q3

REPORT INFORMATION
  Report Type: Report from Study
  Country: AR (occurrence: AR)
  Receive Date: 20210304
  Receipt Date: 20250703
  Transmission Date: 20251021
  Serious: Yes (Hospitalization, Other)
  Sender: INCYTE
  Company Number: AR-002147023-NVSC2020AR007598

PATIENT
  Age: 71 Year

DRUGS (8)
  1. RUXOLITINIB [Suspect]
     Active Substance: RUXOLITINIB
     Indication: Myelofibrosis
     Dosage: 25 MG, QD
  2. RUXOLITINIB [Suspect]
     Active Substance: RUXOLITINIB
     Dosage: 15 MG, Q12H
  3. RUXOLITINIB [Suspect]
     Active Substance: RUXOLITINIB
     Dosage: 15 MG, BID
  4. RUXOLITINIB [Suspect]
     Active Substance: RUXOLITINIB
     Dosage: 5 MG, QD
     Route: 065
  5. RUXOLITINIB [Suspect]
     Active Substance: RUXOLITINIB
     Dosage: 5 MG, Q12H
  6. RUXOLITINIB [Suspect]
     Active Substance: RUXOLITINIB
     Dosage: 25 MG, QD
     Route: 065
  7. ATENOLOL\CHLORTHALIDONE [Concomitant]
     Active Substance: ATENOLOL\CHLORTHALIDONE
     Indication: Product used for unknown indication
     Route: 065
  8. AMLODIPINE BESYLATE\LISINOPRIL [Concomitant]
     Active Substance: AMLODIPINE BESYLATE\LISINOPRIL
     Indication: Product used for unknown indication
     Route: 065

REACTIONS (19)
  - Anaemia [Unknown]
  - Haemorrhage [Unknown]
  - Coagulopathy [Unknown]
  - Malaise [Unknown]
  - Myalgia [Recovering/Resolving]
  - Accident at home [Unknown]
  - Expired product administered [Unknown]
  - Fatigue [Recovering/Resolving]
  - Haemoglobin decreased [Recovering/Resolving]
  - Haematocrit increased [Recovering/Resolving]
  - Wound [Unknown]
  - Liver disorder [Recovering/Resolving]
  - Pain in extremity [Recovering/Resolving]
  - Thrombocytopenia [Unknown]
  - Mental disorder [Unknown]
  - Red blood cell count decreased [Recovering/Resolving]
  - Red blood cell count increased [Recovering/Resolving]
  - Inappropriate schedule of product administration [Unknown]
  - Haematocrit decreased [Not Recovered/Not Resolved]
